FAERS Safety Report 4807721-7 (Version None)
Quarter: 2005Q4

REPORT INFORMATION
  Report Type: 
  Country: None (occurrence: None)
  Receive Date: 20051019
  Receipt Date: 20051003
  Transmission Date: 20060501
  Serious: Yes (Disabling)
  Sender: FDA-Public Use
  Company Number: GB-YAMANOUCHI-YEHQ20051090

PATIENT
  Age: 58 Year
  Sex: Female
  Weight: 82.5 kg

DRUGS (3)
  1. VESICARE [Suspect]
     Indication: POLLAKIURIA
     Dosage: 10 MG QD PO
     Route: 048
  2. PROPRANOLOL [Concomitant]
  3. FLUOXETINE [Concomitant]

REACTIONS (1)
  - VISUAL ACUITY REDUCED [None]
